FAERS Safety Report 8467862-2 (Version None)
Quarter: 2012Q2

REPORT INFORMATION
  Report Type: 
  Country: None (occurrence: None)
  Receive Date: 20120626
  Receipt Date: 20120622
  Transmission Date: 20120825
  Serious: Yes (Other)
  Sender: FDA-Public Use
  Company Number: DE-GLAXOSMITHKLINE-D0075370A

PATIENT
  Sex: Female

DRUGS (8)
  1. CARBIDOPA AND LEVODOPA [Suspect]
     Indication: PARKINSON'S DISEASE
     Dosage: 125MG UNKNOWN
     Route: 048
  2. LACTULOSE [Concomitant]
     Dosage: 10ML PER DAY
     Route: 048
  3. MADOPAR [Suspect]
     Indication: PARKINSON'S DISEASE
     Dosage: 125MG FIVE TIMES PER DAY
     Route: 048
  4. NEUPRO [Suspect]
     Indication: PARKINSON'S DISEASE
     Dosage: 8MG PER DAY
     Route: 062
  5. REQUIP [Suspect]
     Indication: PARKINSON'S DISEASE
     Dosage: 8MG THREE TIMES PER DAY
     Route: 048
  6. TASMAR [Suspect]
     Indication: PARKINSON'S DISEASE
     Dosage: 100MG THREE TIMES PER DAY
     Route: 048
  7. L-DOPA [Concomitant]
     Indication: PARKINSON'S DISEASE
     Route: 065
  8. PK-MERZ [Concomitant]
     Indication: PARKINSON'S DISEASE
     Dosage: 400MG PER DAY
     Route: 048

REACTIONS (4)
  - KLEPTOMANIA [None]
  - PATHOLOGICAL GAMBLING [None]
  - THEFT [None]
  - IMPULSE-CONTROL DISORDER [None]
